FAERS Safety Report 18977822 (Version 2)
Quarter: 2022Q2

REPORT INFORMATION
  Report Type: Spontaneous
  Country: IN (occurrence: IN)
  Receive Date: 20210306
  Receipt Date: 20220411
  Transmission Date: 20220721
  Serious: Yes (Other)
  Sender: FDA-Public Use
  Company Number: IN-NOVARTISPH-NVSC2021IN050593

PATIENT
  Age: 44 Year
  Sex: Male

DRUGS (20)
  1. SIMULECT [Suspect]
     Active Substance: BASILIXIMAB
     Indication: Renal transplant
     Dosage: 20 MG, UNKNOWN
     Route: 065
     Dates: start: 20210217
  2. SIMULECT [Suspect]
     Active Substance: BASILIXIMAB
     Dosage: 20 MG, UNKNOWN
     Route: 065
     Dates: start: 20210221
  3. IMUNOTAC [Concomitant]
     Indication: Product used for unknown indication
     Dosage: 4 MG, BID ON EMPTY STOMACH (7 AM -7 PM) FOR 10 DAYS
     Route: 065
  4. MYFORTIC [Concomitant]
     Active Substance: MYCOPHENOLATE SODIUM
     Indication: Product used for unknown indication
     Dosage: 360 MG BEFORE FOOD (6 AM TO 6 PM) FOR 10 DAYS
     Route: 065
  5. PREDNISOLONE [Concomitant]
     Active Substance: PREDNISOLONE
     Indication: Product used for unknown indication
     Dosage: 20 MG, QID AFTER BREAKFAST AT 8 AM FOR 10 DAYS
     Route: 065
  6. SULFAMETHOXAZOLE\TRIMETHOPRIM [Concomitant]
     Active Substance: SULFAMETHOXAZOLE\TRIMETHOPRIM
     Indication: Product used for unknown indication
     Dosage: 1/2 FOR 10 DAYS
     Route: 065
  7. VALCHEK [Concomitant]
     Indication: Product used for unknown indication
     Dosage: 450 MG, QID FOR 10 DAYS
     Route: 065
  8. REPACE [Concomitant]
     Indication: Product used for unknown indication
     Dosage: 25 MG, BID
     Route: 065
  9. ECOSPORINE [Concomitant]
     Indication: Product used for unknown indication
     Dosage: 75/10 MG, QD AFTER FOOD
     Route: 065
  10. LEVOTHYROXINE [Concomitant]
     Active Substance: LEVOTHYROXINE
     Indication: Product used for unknown indication
     Dosage: 125 MICROGRAM PER GRAM, QID FOR 10 DAYS
     Route: 065
  11. RAPILIF [Concomitant]
     Indication: Product used for unknown indication
     Dosage: 8 MG, QID FOR 10 DAYS
     Route: 065
  12. NEUROBION FORTE [Concomitant]
     Active Substance: CYANOCOBALAMIN\PYRIDOXINE HYDROCHLORIDE\THIAMINE DISULFIDE
     Indication: Product used for unknown indication
     Dosage: UNK, QID FOR 10 DAYS
     Route: 065
  13. SOBISIS [Concomitant]
     Indication: Product used for unknown indication
     Dosage: 500 MG, TID AFTER FIOOD FOR 10 DAYS
     Route: 065
  14. MAGNESIUM [Concomitant]
     Active Substance: MAGNESIUM
     Indication: Product used for unknown indication
     Dosage: 400 MG FOR 10 DAYS
     Route: 065
  15. SHEL D [Concomitant]
     Indication: Product used for unknown indication
     Dosage: 500 MG, BID FOR 10 DAYS
     Route: 065
  16. RANITIDINE HYDROCHLORIDE [Concomitant]
     Active Substance: RANITIDINE HYDROCHLORIDE
     Indication: Product used for unknown indication
     Dosage: 150 MG, BID (BEFORE BED FOR 10 DAYS)
     Route: 065
  17. LEVOFLOXACIN [Concomitant]
     Active Substance: LEVOFLOXACIN
     Indication: Product used for unknown indication
     Dosage: 500 MG, QD FOR 3 DAYS
     Route: 065
  18. ZEROTUSS [Concomitant]
     Indication: Product used for unknown indication
     Dosage: 5 ML (IF REQUIRED)
     Route: 065
  19. CANDID [Concomitant]
     Indication: Product used for unknown indication
     Dosage: UNK, BID FOR 4 DAYS
     Route: 065
  20. LANTUS [Concomitant]
     Active Substance: INSULIN GLARGINE
     Indication: Product used for unknown indication
     Dosage: 10-0-24 UNITS
     Route: 058

REACTIONS (3)
  - Kidney transplant rejection [Unknown]
  - Pneumonia klebsiella [Unknown]
  - Lower respiratory tract infection [Recovering/Resolving]

NARRATIVE: CASE EVENT DATE: 20210225
